FAERS Safety Report 10979352 (Version 3)
Quarter: 2015Q3

REPORT INFORMATION
  Report Type: Spontaneous
  Country: DE (occurrence: DE)
  Receive Date: 20150402
  Receipt Date: 20150716
  Transmission Date: 20151125
  Serious: Yes (Other)
  Sender: FDA-Public Use
  Company Number: DE-PFIZER INC-2015112093

PATIENT
  Sex: Female

DRUGS (5)
  1. PHENYTOIN. [Suspect]
     Active Substance: PHENYTOIN
     Indication: GENERALISED TONIC-CLONIC SEIZURE
     Dosage: 150 MG, DAILY
     Dates: start: 1973
  2. PHENYTOIN. [Suspect]
     Active Substance: PHENYTOIN
     Dosage: REDUCTION DOSE
  3. PHENYTOIN. [Suspect]
     Active Substance: PHENYTOIN
     Indication: COMPLEX PARTIAL SEIZURES
     Dosage: 200 MG, DAILY
  4. PRIMIDONE. [Suspect]
     Active Substance: PRIMIDONE
     Indication: COMPLEX PARTIAL SEIZURES
     Dosage: UNK
     Dates: start: 1973
  5. VALPROIC ACID. [Suspect]
     Active Substance: VALPROIC ACID
     Indication: COMPLEX PARTIAL SEIZURES
     Dosage: UNK
     Dates: start: 1973

REACTIONS (7)
  - Anticonvulsant drug level increased [Recovering/Resolving]
  - Dysarthria [Recovering/Resolving]
  - Toxicity to various agents [Unknown]
  - Cerebellar atrophy [Unknown]
  - Ataxia [Recovering/Resolving]
  - Diplopia [Recovering/Resolving]
  - Drug ineffective [Unknown]
